FAERS Safety Report 20006431 (Version 2)
Quarter: 2021Q4

REPORT INFORMATION
  Report Type: Spontaneous
  Country: US (occurrence: US)
  Receive Date: 20211028
  Receipt Date: 20211105
  Transmission Date: 20220303
  Serious: No
  Sender: FDA-Public Use
  Company Number: US-SA-SAC20211022000120

PATIENT
  Age: 43 Year
  Sex: Female

DRUGS (1)
  1. AUBAGIO [Suspect]
     Active Substance: TERIFLUNOMIDE
     Indication: Multiple sclerosis
     Dosage: 14 MG, QD
     Route: 048

REACTIONS (6)
  - Pain [Unknown]
  - Muscle spasms [Unknown]
  - Facial pain [Unknown]
  - Pain in extremity [Unknown]
  - Pain in extremity [Unknown]
  - Hypoaesthesia [Unknown]
